FAERS Safety Report 6160472-1 (Version None)
Quarter: 2009Q2

REPORT INFORMATION
  Report Type: 
  Country: None (occurrence: None)
  Receive Date: 20090415
  Receipt Date: 20090415
  Transmission Date: 20091009
  Serious: Yes (Death)
  Sender: FDA-Public Use
  Company Number: None

PATIENT
  Sex: Male

DRUGS (12)
  1. REVLIMID [Suspect]
     Dosage: 25MG DAILY ORALLY
     Route: 048
     Dates: start: 20061001, end: 20070301
  2. REVLIMID [Suspect]
     Dosage: 25MG DAILY ORALLY
     Route: 048
     Dates: start: 20081201
  3. REVLIMID [Suspect]
  4. LEVETIRACOTAM [Concomitant]
  5. OLANZAPINE [Concomitant]
  6. ONTANYL PATCH [Concomitant]
  7. HYDROMORPHONE TABLETS [Concomitant]
  8. TAMSULOSIN HCL [Concomitant]
  9. CITALOPRAM HYDROBROMIDE [Concomitant]
  10. OXYBUTYNIN CHLORIDE [Concomitant]
  11. OMEPRAZOLE [Concomitant]
  12. DOCUSATE SODIUM [Concomitant]

REACTIONS (2)
  - ASTHENIA [None]
  - BONE MARROW TRANSPLANT [None]
